FAERS Safety Report 5373733-0 (Version None)
Quarter: 2007Q2

REPORT INFORMATION
  Report Type: 
  Country: None (occurrence: None)
  Receive Date: 20070628
  Receipt Date: 20070501
  Transmission Date: 20071010
  Serious: Yes (Other)
  Sender: FDA-Public Use
  Company Number: US-PURDUE-USA_2007_0027684

PATIENT
  Sex: Male
  Weight: 102 kg

DRUGS (16)
  1. OXYCONTIN [Suspect]
     Indication: BACK PAIN
     Dosage: 20 MG, Q12H
     Dates: start: 20000809, end: 20001101
  2. HUMULIN N [Concomitant]
  3. GLIPIZIDE [Concomitant]
  4. ISOSORBIDE DINITRATE [Concomitant]
  5. ZANTAC [Concomitant]
  6. POTASSIUM ACETATE [Concomitant]
  7. DIGOXIN [Concomitant]
  8. AVANDIA [Concomitant]
  9. IRON [Concomitant]
  10. ACETYLSALICYLIC ACID SRT [Concomitant]
  11. LASIX [Concomitant]
  12. HYDROCHLOROTHIAZIDE [Concomitant]
  13. DOCUSATE [Concomitant]
  14. PROZAC [Concomitant]
  15. LISINOPRIL [Concomitant]
  16. COUMADIN [Concomitant]

REACTIONS (33)
  - AGGRESSION [None]
  - AGITATION [None]
  - ANHEDONIA [None]
  - ANOREXIA [None]
  - ANXIETY [None]
  - APNOEA [None]
  - CHILLS [None]
  - CONFUSIONAL STATE [None]
  - CONSTIPATION [None]
  - CRYING [None]
  - DEPRESSION [None]
  - DIZZINESS [None]
  - DRUG DEPENDENCE [None]
  - DRUG INTOLERANCE [None]
  - DRY SKIN [None]
  - EMOTIONAL DISORDER [None]
  - FACE OEDEMA [None]
  - FEELING HOT AND COLD [None]
  - GAIT DISTURBANCE [None]
  - HYPERHIDROSIS [None]
  - INSOMNIA [None]
  - LACRIMATION INCREASED [None]
  - MALAISE [None]
  - MUSCLE TWITCHING [None]
  - NAUSEA [None]
  - NERVOUSNESS [None]
  - OEDEMA PERIPHERAL [None]
  - PAIN [None]
  - PRURITUS [None]
  - SUICIDAL IDEATION [None]
  - THIRST [None]
  - URINARY RETENTION [None]
  - VISUAL DISTURBANCE [None]
